FAERS Safety Report 7171244-3 (Version None)
Quarter: 2010Q4

REPORT INFORMATION
  Report Type: 
  Country: None (occurrence: None)
  Receive Date: 20101217
  Receipt Date: 20101213
  Transmission Date: 20110411
  Serious: Yes (Other)
  Sender: FDA-Public Use
  Company Number: CA-ASTRAZENECA-2010SE58322

PATIENT
  Age: 54 Year
  Sex: Female

DRUGS (3)
  1. SYMBICORT [Suspect]
     Indication: ASTHMA
     Route: 055
  2. SYMBICORT [Suspect]
     Dosage: 200/6 TWO PUFFS TWICE A DAY
     Route: 055
     Dates: start: 20101001
  3. SYMBICORT [Suspect]
     Dosage: 200/6 UG TWO PUFFS TWICE A DAY
     Route: 055

REACTIONS (3)
  - ASTHMA [None]
  - CHEST DISCOMFORT [None]
  - DRUG INEFFECTIVE [None]
